FAERS Safety Report 6383538-X (Version None)
Quarter: 2009Q3

REPORT INFORMATION
  Report Type: 
  Country: None (occurrence: None)
  Receive Date: 20090928
  Receipt Date: 20090914
  Transmission Date: 20100115
  Serious: Yes (Life-Threatening, Hospitalization, Other)
  Sender: FDA-Public Use
  Company Number: 2009AL006122

PATIENT
  Age: 78 Year
  Sex: Male

DRUGS (14)
  1. RAMIPRIL [Suspect]
     Indication: HYPERTENSION
     Dosage: 2.5 MG;QD;PO
     Route: 048
     Dates: end: 20090909
  2. SULFATRIM AND SULFATRIM PEDIATRIC SUSPENSION (SULFAMETHOXAZOLE/TRIMETH [Suspect]
     Indication: PERITONITIS BACTERIAL
     Dosage: 1960 MG; PO
     Route: 048
     Dates: start: 20090820, end: 20090909
  3. SPIRONOLACTONE [Suspect]
     Indication: ALCOHOLIC LIVER DISEASE
     Dosage: 100 MG;QD;PO
     Route: 048
     Dates: end: 20090909
  4. NOVOMIX [Concomitant]
  5. TAMSULOSIN [Concomitant]
  6. ALLOPURINOL [Concomitant]
  7. ACETYLSALICYLIC ACID [Concomitant]
  8. GLYCERYL TRINITRATE [Concomitant]
  9. ISOSORBIDE MONONITRATE [Concomitant]
  10. LACTULOSE [Concomitant]
  11. SUCRALFATE [Concomitant]
  12. THIAMINE HCL [Concomitant]
  13. PROPRANOLOL [Concomitant]
  14. LANSOPRAZOLE [Concomitant]

REACTIONS (2)
  - DRUG INTERACTION [None]
  - HYPERKALAEMIA [None]
